FAERS Safety Report 4879819-9 (Version None)
Quarter: 2006Q1

REPORT INFORMATION
  Report Type: 
  Country: None (occurrence: None)
  Receive Date: 20060113
  Receipt Date: 20060109
  Transmission Date: 20060701
  Serious: Yes (Hospitalization)
  Sender: FDA-Public Use
  Company Number: US-JNJFOC-20060101770

PATIENT
  Sex: Female
  Weight: 79.38 kg

DRUGS (5)
  1. DURAGESIC-100 [Suspect]
     Route: 062
  2. ZIRTEC [Concomitant]
     Dosage: TAKEN AS NEEDED.
     Route: 048
  3. PROTONIX [Concomitant]
     Route: 048
  4. DARVOCET [Concomitant]
     Route: 048
  5. DARVOCET [Concomitant]
     Route: 048

REACTIONS (2)
  - DYSPNOEA [None]
  - PULMONARY CONGESTION [None]
